FAERS Safety Report 9520695 (Version 3)
Quarter: 2013Q4

REPORT INFORMATION
  Report Type: Spontaneous
  Country: IT (occurrence: IT)
  Receive Date: 20130913
  Receipt Date: 20131028
  Transmission Date: 20140711
  Serious: Yes (Other)
  Sender: FDA-Public Use
  Company Number: IT-BRISTOL-MYERS SQUIBB COMPANY-19361351

PATIENT
  Age: 43 Year
  Sex: Male
  Weight: 70 kg

DRUGS (7)
  1. ERBITUX SOLN FOR INF 5MG/ML [Suspect]
     Indication: ADENOCARCINOMA OF COLON
     Dosage: 23AUG-23AUG13 400MG?11SP-UNK 400MG?27SEP13-ONG 300MG
     Route: 042
     Dates: start: 20130823
  2. FLUOROURACIL [Concomitant]
     Route: 042
     Dates: start: 20130823, end: 20130823
  3. CALCIUM LEVOFOLINATE [Concomitant]
     Route: 042
     Dates: start: 20130823, end: 20130823
  4. TRIMETON [Concomitant]
     Indication: PREMEDICATION
     Route: 030
     Dates: start: 20130823, end: 20130823
  5. MEGACORT [Concomitant]
     Indication: PREMEDICATION
     Route: 042
     Dates: start: 20130823, end: 20130823
  6. RANIDIL [Concomitant]
     Indication: PREMEDICATION
     Route: 042
     Dates: start: 20130823, end: 20130823
  7. ZOFRAN [Concomitant]
     Indication: PREMEDICATION
     Route: 042
     Dates: start: 20130823, end: 20130823

REACTIONS (1)
  - Hiccups [Not Recovered/Not Resolved]
